FAERS Safety Report 6361402-X (Version None)
Quarter: 2009Q3

REPORT INFORMATION
  Report Type: 
  Country: None (occurrence: None)
  Receive Date: 20090918
  Receipt Date: 20090909
  Transmission Date: 20100115
  Serious: Yes (Other)
  Sender: FDA-Public Use
  Company Number: HR-ABBOTT-09P-216-0595477-00

PATIENT
  Age: 32 Year
  Sex: Male

DRUGS (4)
  1. HUMIRA [Suspect]
     Indication: ANKYLOSING SPONDYLITIS
     Dates: start: 20090609
  2. HUMIRA [Suspect]
  3. ROCALCITOL [Concomitant]
     Indication: DRUG USE FOR UNKNOWN INDICATION
     Dates: start: 20090424
  4. TRAMAL [Concomitant]
     Indication: ANALGESIA

REACTIONS (5)
  - APPLICATION SITE ERYTHEMA [None]
  - APPLICATION SITE PRURITUS [None]
  - GRANULOMA [None]
  - OEDEMA PERIPHERAL [None]
  - RENAL FAILURE [None]
